FAERS Safety Report 9788605 (Version 1)
Quarter: 2013Q4

REPORT INFORMATION
  Report Type: Spontaneous
  Country: FR (occurrence: FR)
  Receive Date: 20131230
  Receipt Date: 20131230
  Transmission Date: 20140711
  Serious: Yes (Death)
  Sender: FDA-Public Use
  Company Number: FR-TEVA-453237USA

PATIENT
  Age: 80 Year
  Sex: Male

DRUGS (11)
  1. LEVACT [Suspect]
     Indication: MANTLE CELL LYMPHOMA
     Dosage: UNKNOWN/D
     Route: 041
     Dates: start: 20131025, end: 20131025
  2. METHYLPREDNISOLONE [Suspect]
     Indication: PRODUCT USED FOR UNKNOWN INDICATION
     Dosage: UID/QD
     Dates: start: 20131025, end: 20131025
  3. MABTHERA [Suspect]
     Indication: MANTLE CELL LYMPHOMA
     Dosage: UID/QD
     Route: 042
     Dates: start: 20131025, end: 20131025
  4. FASTURTEC [Suspect]
     Indication: TUMOUR LYSIS SYNDROME
     Dates: start: 20131024, end: 20131024
  5. ZOPHREN [Suspect]
     Indication: PROPHYLAXIS OF NAUSEA AND VOMITING
     Dosage: UID/QD
     Route: 041
     Dates: start: 20131025, end: 20131025
  6. PRAVASTATINE [Concomitant]
  7. LASILIX [Concomitant]
  8. XYZALL [Concomitant]
  9. CALCIPARIN [Concomitant]
  10. FLECAINE [Concomitant]
  11. DISCOTRINE [Concomitant]

REACTIONS (1)
  - Death [Fatal]
